FAERS Safety Report 4989131-5 (Version None)
Quarter: 2006Q1

REPORT INFORMATION
  Report Type: 
  Country: None (occurrence: None)
  Receive Date: 20060314
  Receipt Date: 20051226
  Transmission Date: 20060701
  Serious: Yes (Hospitalization)
  Sender: FDA-Public Use
  Company Number: 200515172BCC

PATIENT
  Age: 28 Year
  Sex: Female
  Weight: 45.3597 kg

DRUGS (1)
  1. ALEVE [Suspect]
     Dosage: 13200-15400 MG, ONCE, ORAL
     Route: 048
     Dates: start: 20051226

REACTIONS (3)
  - BLOOD BILIRUBIN UNCONJUGATED INCREASED [None]
  - NAUSEA [None]
  - VOMITING [None]
